FAERS Safety Report 6020421-3 (Version None)
Quarter: 2008Q4

REPORT INFORMATION
  Report Type: 
  Country: None (occurrence: None)
  Receive Date: 20081222
  Receipt Date: 20081124
  Transmission Date: 20090506
  Serious: Yes (Death)
  Sender: FDA-Public Use
  Company Number: DAB-2008-00059

PATIENT
  Age: 48 Year
  Sex: Male
  Weight: 80 kg

DRUGS (11)
  1. PACLITAXEL [Suspect]
     Indication: PROSTATE CANCER
     Dosage: 1 IN 1 WEEKS
  2. CARBOPLATIN [Suspect]
     Indication: PROSTATE CANCER
     Dosage: 1 IN 1 WEEKS
  3. DASATINIB (DASATINIB) [Suspect]
     Indication: PROSTATE CANCER
     Dosage: ORAL
     Route: 048
     Dates: start: 20080820, end: 20080825
  4. AMILORIDE HYDROCHLORIDE [Concomitant]
  5. BICALUTAMIDE [Concomitant]
  6. BUMETANIDE [Concomitant]
  7. CEFETAZIDIME (CEFETAZIDIME) [Concomitant]
  8. LANSOPRAZOLE [Concomitant]
  9. METHYLPREDNISOLONE 16MG TAB [Concomitant]
  10. SALBUTAMOL (SALBUTAMOL) [Concomitant]
  11. TEICOPLANIN (TEICOPLANIN) [Concomitant]

REACTIONS (3)
  - DISEASE PROGRESSION [None]
  - LYMPHANGIOSIS CARCINOMATOSA [None]
  - PROSTATE CANCER [None]
